FAERS Safety Report 4974378-4 (Version None)
Quarter: 2006Q2

REPORT INFORMATION
  Report Type: 
  Country: None (occurrence: None)
  Receive Date: 20060410
  Receipt Date: 20060328
  Transmission Date: 20061013
  Serious: Yes (Other)
  Sender: FDA-Public Use
  Company Number: 2006042851

PATIENT
  Age: 26 Year
  Sex: Female

DRUGS (1)
  1. CLINDAMYCIN PHOSPHATE GEL (CLINDAMYCIN PHOSPHATE) [Suspect]
     Indication: ILL-DEFINED DISORDER
     Dosage: (1 IN 1 D), TOPICAL
     Route: 061
     Dates: start: 20060126, end: 20060101

REACTIONS (2)
  - COLITIS ULCERATIVE [None]
  - CROHN'S DISEASE [None]
